FAERS Safety Report 19086181 (Version 1)
Quarter: 2021Q2

REPORT INFORMATION
  Report Type: Spontaneous
  Country: CA (occurrence: CA)
  Receive Date: 20210402
  Receipt Date: 20210402
  Transmission Date: 20210717
  Serious: Yes (Other)
  Sender: FDA-Public Use
  Company Number: CA-BAYER-2021-109865

PATIENT
  Sex: Male

DRUGS (1)
  1. RESTORALAX [Suspect]
     Active Substance: POLYETHYLENE GLYCOL 3350

REACTIONS (6)
  - Oropharyngeal pain [None]
  - Tonsillar hypertrophy [None]
  - Ear pain [None]
  - Lymphadenopathy [None]
  - Pharyngeal swelling [None]
  - Tracheal stenosis [None]
